FAERS Safety Report 4558909-4 (Version None)
Quarter: 2005Q1

REPORT INFORMATION
  Report Type: 
  Country: None (occurrence: None)
  Receive Date: 20050119
  Receipt Date: 20030618
  Transmission Date: 20050727
  Serious: Yes (Other)
  Sender: FDA-Public Use
  Company Number: 2003IM000650

PATIENT
  Sex: 0

DRUGS (1)
  1. INFERGEN [Suspect]
     Indication: METASTATIC RENAL CELL CARCINOMA
     Dosage: 21 UG;TIW;SUBCUTANEOUS
     Route: 058

REACTIONS (1)
  - HYPOCALCAEMIA [None]
